FAERS Safety Report 16526976 (Version 2)
Quarter: 2019Q3

REPORT INFORMATION
  Report Type: Report from Study
  Country: None (occurrence: US)
  Receive Date: 20190703
  Receipt Date: 20190728
  Transmission Date: 20191004
  Serious: Yes (Other)
  Sender: FDA-Public Use
  Company Number: US-ABBVIE-19K-163-2837989-00

PATIENT
  Age: 21 Year
  Sex: Female

DRUGS (7)
  1. HUMIRA [Suspect]
     Active Substance: ADALIMUMAB
     Dosage: DAY 15
     Route: 058
     Dates: start: 20190403, end: 20190403
  2. PRENATAL VITAMINS [Concomitant]
     Active Substance: VITAMINS
     Indication: PRODUCT USED FOR UNKNOWN INDICATION
  3. IRON [Concomitant]
     Active Substance: IRON
     Indication: PRODUCT USED FOR UNKNOWN INDICATION
  4. HUMIRA [Suspect]
     Active Substance: ADALIMUMAB
     Indication: CROHN^S DISEASE
     Dosage: DAY ONE
     Route: 058
     Dates: start: 20190320, end: 20190320
  5. HUMIRA [Suspect]
     Active Substance: ADALIMUMAB
     Route: 058
     Dates: start: 20190417, end: 2019
  6. HUMIRA [Suspect]
     Active Substance: ADALIMUMAB
     Dosage: ACCIDENTALLY TOOK 2 PENS
     Route: 058
     Dates: start: 20190629, end: 20190629
  7. HUMIRA [Suspect]
     Active Substance: ADALIMUMAB
     Route: 058
     Dates: start: 20190611, end: 201906

REACTIONS (12)
  - Hypoaesthesia [Unknown]
  - Diarrhoea [Unknown]
  - Rectal haemorrhage [Unknown]
  - Ileectomy [Unknown]
  - Arthralgia [Unknown]
  - Exposure during pregnancy [Unknown]
  - Insomnia [Unknown]
  - Abdominal pain upper [Recovering/Resolving]
  - Abdominal pain [Recovering/Resolving]
  - Nausea [Unknown]
  - Vomiting [Unknown]
  - Incorrect dose administered [Unknown]

NARRATIVE: CASE EVENT DATE: 2019
